FAERS Safety Report 7724650-X (Version None)
Quarter: 2011Q3

REPORT INFORMATION
  Report Type: 
  Country: None (occurrence: None)
  Receive Date: 20110829
  Receipt Date: 20110811
  Transmission Date: 20111222
  Serious: Yes (Life-Threatening, Other)
  Sender: FDA-Public Use
  Company Number: TUK2011A00113

PATIENT
  Age: 71 Year
  Sex: Male

DRUGS (9)
  1. ATORVASTATIN [Concomitant]
  2. ACTOS [Suspect]
     Indication: TYPE 2 DIABETES MELLITUS
     Dosage: (15 MG) ORAL
     Route: 048
     Dates: start: 20070615, end: 20110808
  3. SIMVASTATIN [Concomitant]
  4. ACETAMINOPHEN [Concomitant]
  5. IRBESARTAN (IRBESARTAN) [Concomitant]
  6. DOXAZOSIN MESYLATE [Concomitant]
  7. BUEMTANIDE (BUEMTANIDE) [Concomitant]
  8. METFORMIN HCL [Concomitant]
  9. AMLODIPINE [Concomitant]

REACTIONS (1)
  - BLADDER CANCER [None]
